FAERS Safety Report 23409704 (Version 2)
Quarter: 2024Q1

REPORT INFORMATION
  Report Type: Report from Study
  Country: US (occurrence: US)
  Receive Date: 20240117
  Receipt Date: 20240215
  Transmission Date: 20240410
  Serious: No
  Sender: FDA-Public Use
  Company Number: US-TAKEDA-2024TUS004814

PATIENT
  Sex: Female

DRUGS (1)
  1. HUMAN IMMUNOGLOBULIN G [Suspect]
     Active Substance: HUMAN IMMUNOGLOBULIN G
     Indication: Product used for unknown indication
     Dosage: 18 GRAM, Q2WEEKS
     Route: 050
     Dates: start: 202209

REACTIONS (3)
  - Muscle discomfort [Unknown]
  - Product packaging issue [Unknown]
  - Injection site pain [Not Recovered/Not Resolved]
